FAERS Safety Report 25138891 (Version 1)
Quarter: 2025Q1

REPORT INFORMATION
  Report Type: Spontaneous
  Country: GB (occurrence: GB)
  Receive Date: 20250331
  Receipt Date: 20250331
  Transmission Date: 20250409
  Serious: Yes (Other)
  Sender: BOEHRINGER INGELHEIM
  Company Number: GB-MHRA-TPP9432057C10680995YC1742566346428

PATIENT
  Age: 81 Year
  Sex: Male
  Weight: 60 kg

DRUGS (22)
  1. EMPAGLIFLOZIN [Suspect]
     Active Substance: EMPAGLIFLOZIN
     Indication: Ill-defined disorder
     Dates: start: 20250211, end: 20250314
  2. AMOXICILLIN [Concomitant]
     Active Substance: AMOXICILLIN
     Indication: Ill-defined disorder
     Dosage: FORM OF ADMIN:TPP YC - PLEASE RECLASSIFY
     Dates: start: 20241231, end: 20250105
  3. TRAMADOL [Concomitant]
     Active Substance: TRAMADOL
     Indication: Ill-defined disorder
     Dates: start: 20250303, end: 20250310
  4. NITROGLYCERIN [Concomitant]
     Active Substance: NITROGLYCERIN
     Indication: Ill-defined disorder
  5. RAMIPRIL [Concomitant]
     Active Substance: RAMIPRIL
     Indication: Ill-defined disorder
     Dosage: FORM OF ADMIN:TPP YC - PLEASE RECLASSIFY
     Dates: start: 20231220
  6. UMECLIDINIUM BROMIDE\VILANTEROL TRIFENATATE [Concomitant]
     Active Substance: UMECLIDINIUM BROMIDE\VILANTEROL TRIFENATATE
     Indication: Ill-defined disorder
  7. OXYCODONE HYDROCHLORIDE [Concomitant]
     Active Substance: OXYCODONE HYDROCHLORIDE
     Indication: Ill-defined disorder
     Dosage: 2.5-5MG TO BE TAKEN TWICE DAILY WHEN REQUIRED?FORM OF ADMIN:TPP YC - PLEASE RECLASSIFY
     Dates: start: 20240201, end: 20250212
  8. APIXABAN [Concomitant]
     Active Substance: APIXABAN
     Indication: Ill-defined disorder
     Dosage: FORM OF ADMIN:TPP YC - PLEASE RECLASSIFY
     Dates: start: 20240202
  9. ATORVASTATIN [Concomitant]
     Active Substance: ATORVASTATIN
     Indication: Ill-defined disorder
  10. LEVOTHYROXINE [Concomitant]
     Active Substance: LEVOTHYROXINE
     Indication: Ill-defined disorder
     Dosage: FORM OF ADMIN:TPP YC - PLEASE RECLASSIFY
     Dates: start: 20240408
  11. SILDENAFIL [Concomitant]
     Active Substance: SILDENAFIL
     Indication: Ill-defined disorder
  12. ASPIRIN [Concomitant]
     Active Substance: ASPIRIN
     Indication: Ill-defined disorder
     Dosage: FORM OF ADMIN:TPP YC - PLEASE RECLASSIFY
     Dates: start: 20241003
  13. LANSOPRAZOLE [Concomitant]
     Active Substance: LANSOPRAZOLE
     Indication: Ill-defined disorder
     Dosage: FORM OF ADMIN:TPP YC - PLEASE RECLASSIFY
     Dates: start: 20241003
  14. QUETIAPINE [Concomitant]
     Active Substance: QUETIAPINE
     Indication: Ill-defined disorder
     Dosage: FORM OF ADMIN:TPP YC - PLEASE RECLASSIFY
     Dates: start: 20241003, end: 20250212
  15. SPIRONOLACTONE [Concomitant]
     Active Substance: SPIRONOLACTONE
     Indication: Ill-defined disorder
     Dosage: FORM OF ADMIN:TPP YC - PLEASE RECLASSIFY
     Dates: start: 20241003, end: 20250206
  16. THIAMINE [Concomitant]
     Active Substance: THIAMINE
     Indication: Ill-defined disorder
     Dosage: FORM OF ADMIN:TPP YC - PLEASE RECLASSIFY
     Dates: start: 20241003
  17. VITAMIN B COMPLEX NOS [Concomitant]
     Active Substance: CYANOCOBALAMIN\PYRIDOXINE HYDROCHLORIDE\RIBOFLAVIN\SODIUM PANTOTHENATE\THIAMINE HYDROCHLORIDE\VITAMI
     Indication: Ill-defined disorder
     Dosage: FORM OF ADMIN:TPP YC - PLEASE RECLASSIFY
     Dates: start: 20241003
  18. SENNA [Concomitant]
     Active Substance: SENNOSIDES
     Indication: Ill-defined disorder
     Dosage: FORM OF ADMIN:TPP YC - PLEASE RECLASSIFY
     Dates: start: 20241024, end: 20250212
  19. BISOPROLOL [Concomitant]
     Active Substance: BISOPROLOL
     Indication: Ill-defined disorder
     Dosage: FORM OF ADMIN:TPP YC - PLEASE RECLASSIFY
     Dates: start: 20241205
  20. FUROSEMIDE [Concomitant]
     Active Substance: FUROSEMIDE
     Indication: Ill-defined disorder
     Dosage: TAKE ONE TABLET ALTERNATE DAILY AS ADVISED BY H...?FORM OF ADMIN:TPP YC - PLEASE RECLASSIFY
     Dates: start: 20241205
  21. CALOGEN EXTRA SHOTS [Concomitant]
     Indication: Ill-defined disorder
     Dates: start: 20241211, end: 20250121
  22. CARBOHYDRATES\FATTY ACIDS\MINERALS\PROTEIN\VITAMINS [Concomitant]
     Active Substance: CARBOHYDRATES\FATTY ACIDS\MINERALS\PROTEIN\VITAMINS
     Indication: Ill-defined disorder
     Dates: start: 20241211, end: 20250121

REACTIONS (2)
  - Back pain [Unknown]
  - Testicular swelling [Unknown]
